FAERS Safety Report 12790223 (Version 2)
Quarter: 2016Q4

REPORT INFORMATION
  Report Type: Spontaneous
  Country: US (occurrence: US)
  Receive Date: 20160928
  Receipt Date: 20161129
  Transmission Date: 20170207
  Serious: Yes (Hospitalization)
  Sender: FDA-Public Use
  Company Number: PHEH2016US024601

PATIENT
  Age: 81 Year
  Sex: Male
  Weight: 84 kg

DRUGS (3)
  1. AMIODARONE [Concomitant]
     Active Substance: AMIODARONE
     Dosage: UNK
     Route: 048
     Dates: start: 20160902, end: 20160903
  2. SANDOSTATIN LAR DEPOT [Suspect]
     Active Substance: OCTREOTIDE ACETATE
     Indication: HYPOPITUITARISM
     Dosage: UNK
     Route: 065
     Dates: end: 20160901
  3. AMIODARONE [Concomitant]
     Active Substance: AMIODARONE
     Indication: VENTRICULAR TACHYCARDIA
     Dosage: 0.5 MG/MIN, UNK
     Route: 042
     Dates: start: 20160331, end: 20160902

REACTIONS (3)
  - Arrhythmia [Unknown]
  - Syncope [Recovered/Resolved]
  - Product use issue [Unknown]

NARRATIVE: CASE EVENT DATE: 20160831
